FAERS Safety Report 4737843-0 (Version None)
Quarter: 2005Q3

REPORT INFORMATION
  Report Type: 
  Country: None (occurrence: None)
  Receive Date: 20050805
  Receipt Date: 20050725
  Transmission Date: 20060218
  Serious: Yes (Other)
  Sender: FDA-Public Use
  Company Number: 2005107613

PATIENT
  Age: 57 Year
  Sex: Female

DRUGS (6)
  1. UNASYN [Suspect]
     Indication: PNEUMONIA
     Dosage: 3 GRAM, INTRAVENOUS
     Route: 042
     Dates: start: 20050715, end: 20050719
  2. BASEN (VOGLIBOSE) [Concomitant]
  3. THEOLONG (THEOPHYLLINE) [Concomitant]
  4. AMARYL [Concomitant]
  5. TETRAMIDE (MIANSERIN HYDROCHLORIDE) [Concomitant]
  6. DEPAS (ETIZOLAM) [Concomitant]

REACTIONS (1)
  - ENTEROCOLITIS HAEMORRHAGIC [None]
